FAERS Safety Report 7802956-3 (Version None)
Quarter: 2011Q4

REPORT INFORMATION
  Report Type: 
  Country: None (occurrence: None)
  Receive Date: 20111007
  Receipt Date: 20110929
  Transmission Date: 20120403
  Serious: Yes (Life-Threatening, Hospitalization)
  Sender: FDA-Public Use
  Company Number: UA-CELGENEUS-269-C5013-06010557

PATIENT
  Sex: Male
  Weight: 67 kg

DRUGS (9)
  1. METRONIDAZOLE [Concomitant]
     Dosage: 500 MILLIGRAM
     Route: 041
     Dates: start: 20060122, end: 20060126
  2. KALII CHLORIDUM [Concomitant]
     Dosage: 10ML
     Route: 041
     Dates: start: 20060121, end: 20060124
  3. KALII CHLORIDUM [Concomitant]
     Indication: PROPHYLAXIS
  4. METRONIDAZOLE [Concomitant]
     Indication: PROPHYLAXIS
  5. DEXTROSE [Concomitant]
     Dosage: 400 MILLIGRAM/MILLILITERS
     Route: 041
     Dates: start: 20060121, end: 20060124
  6. LENALIDOMIDE [Suspect]
     Indication: MULTIPLE MYELOMA
     Dosage: 15 MILLIGRAM
     Route: 048
     Dates: start: 20051003, end: 20060121
  7. CINNARIZINE [Concomitant]
     Route: 065
     Dates: start: 20051128, end: 20060120
  8. CEFTRIAXONE [Concomitant]
     Route: 041
     Dates: start: 20060122, end: 20060126
  9. LENALIDOMIDE [Suspect]
     Dosage: 15 MILLIGRAM
     Route: 048
     Dates: start: 20060220

REACTIONS (1)
  - COLON CANCER [None]
